FAERS Safety Report 24300365 (Version 1)
Quarter: 2024Q3

REPORT INFORMATION
  Report Type: Report from Study
  Country: US (occurrence: US)
  Receive Date: 20240909
  Receipt Date: 20240909
  Transmission Date: 20241017
  Serious: Yes (Hospitalization)
  Sender: TAKEDA
  Company Number: US-TAKEDA-2024TUS088933

PATIENT
  Sex: Male

DRUGS (2)
  1. ADAMTS13, RECOMBINANT-KRHN [Suspect]
     Active Substance: ADAMTS13, RECOMBINANT-KRHN
     Indication: Thrombotic microangiopathy
     Dosage: UNK UNK, 2/WEEK
     Route: 065
  2. ADAMTS13, RECOMBINANT-KRHN [Suspect]
     Active Substance: ADAMTS13, RECOMBINANT-KRHN
     Dosage: UNK, MONTHLY
     Route: 065

REACTIONS (1)
  - Multimorbidity [Not Recovered/Not Resolved]
